FAERS Safety Report 17319792 (Version 2)
Quarter: 2020Q1

REPORT INFORMATION
  Report Type: Report from Study
  Country: US (occurrence: US)
  Receive Date: 20200125
  Receipt Date: 20200220
  Transmission Date: 20200409
  Serious: Yes (Other)
  Sender: FDA-Public Use
  Company Number: US-AMGEN-USASL2019217017

PATIENT
  Age: 62 Year
  Sex: Female

DRUGS (4)
  1. REPATHA [Suspect]
     Active Substance: EVOLOCUMAB
     Indication: HYPERCHOLESTEROLAEMIA
     Dosage: 140 MILLIGRAM, Q2WK
     Route: 065
     Dates: start: 20191213
  2. REPATHA [Suspect]
     Active Substance: EVOLOCUMAB
     Indication: BLOOD CHOLESTEROL INCREASED
     Dosage: 140 MILLIGRAM, Q2WK
     Route: 065
  3. PLAVIX [Concomitant]
     Active Substance: CLOPIDOGREL BISULFATE
     Dosage: UNK
  4. REPATHA [Suspect]
     Active Substance: EVOLOCUMAB
     Dosage: 140 MILLIGRAM, Q2WK
     Route: 065

REACTIONS (12)
  - Respiratory tract congestion [Not Recovered/Not Resolved]
  - Drug ineffective [Unknown]
  - Myalgia [Unknown]
  - Arthralgia [Unknown]
  - Injection site scar [Unknown]
  - Back pain [Unknown]
  - Injection site bruising [Unknown]
  - Injection site pain [Unknown]
  - Overweight [Unknown]
  - Malaise [Unknown]
  - Oxygen saturation abnormal [Unknown]
  - Needle issue [Unknown]

NARRATIVE: CASE EVENT DATE: 201912
